FAERS Safety Report 4732058-4 (Version None)
Quarter: 2005Q3

REPORT INFORMATION
  Report Type: 
  Country: None (occurrence: None)
  Receive Date: 20050722
  Receipt Date: 20050113
  Transmission Date: 20060218
  Serious: Yes (Hospitalization)
  Sender: FDA-Public Use
  Company Number: 2005SP000011

PATIENT
  Age: 50 Year
  Sex: Female
  Weight: 127.0072 kg

DRUGS (1)
  1. XOPENEX [Suspect]
     Indication: ASTHMA
     Dosage: 1.25 MG;Q6H;INHALATION
     Route: 055
     Dates: start: 20050104, end: 20050110

REACTIONS (1)
  - ASTHMA [None]
